FAERS Safety Report 14519492 (Version 2)
Quarter: 2018Q1

REPORT INFORMATION
  Report Type: Spontaneous
  Country: FR (occurrence: FR)
  Receive Date: 20180212
  Receipt Date: 20180314
  Transmission Date: 20180509
  Serious: Yes (Other)
  Sender: FDA-Public Use
  Company Number: PHHY2017FR200356

PATIENT
  Age: 38 Year
  Sex: Male

DRUGS (13)
  1. TACROLIMUS. [Suspect]
     Active Substance: TACROLIMUS
     Dosage: 22 MG, QD
     Route: 065
     Dates: start: 20170206
  2. CELLCEPT [Concomitant]
     Active Substance: MYCOPHENOLATE MOFETIL\MYCOPHENOLATE MOFETIL HYDROCHLORIDE
     Indication: IMMUNOSUPPRESSION
     Dosage: 1000 OT, QD
     Route: 065
     Dates: start: 20170405
  3. TACROLIMUS. [Suspect]
     Active Substance: TACROLIMUS
     Indication: RENAL TRANSPLANT
     Dosage: 19 MG, QD
     Route: 065
     Dates: start: 20170110
  4. TACROLIMUS. [Suspect]
     Active Substance: TACROLIMUS
     Dosage: 23 MG, QD
     Route: 065
     Dates: start: 20170201
  5. TACROLIMUS. [Suspect]
     Active Substance: TACROLIMUS
     Dosage: 20 MG, QD
     Route: 065
     Dates: start: 20170112
  6. CORTANCYL [Concomitant]
     Active Substance: PREDNISONE
     Indication: IMMUNOSUPPRESSION
     Dosage: 7.5 OT, QD
     Route: 065
     Dates: start: 20170405
  7. TACROLIMUS. [Suspect]
     Active Substance: TACROLIMUS
     Dosage: 18 MG, QD
     Route: 065
     Dates: start: 20170309
  8. TACROLIMUS. [Suspect]
     Active Substance: TACROLIMUS
     Dosage: 18 MG, QD
     Route: 065
     Dates: start: 20170921
  9. TACROLIMUS. [Suspect]
     Active Substance: TACROLIMUS
     Dosage: 20 MG, QD
     Route: 065
     Dates: start: 20170405
  10. TACROLIMUS. [Suspect]
     Active Substance: TACROLIMUS
     Dosage: 19 MG, QD
     Route: 065
     Dates: start: 20170525
  11. TACROLIMUS. [Suspect]
     Active Substance: TACROLIMUS
     Dosage: 22 MG, QD
     Route: 065
     Dates: start: 20170120
  12. TACROLIMUS. [Suspect]
     Active Substance: TACROLIMUS
     Dosage: 20 MG, QD
     Route: 065
     Dates: start: 20170429
  13. TACROLIMUS. [Suspect]
     Active Substance: TACROLIMUS
     Dosage: 18 MG, QD
     Route: 065
     Dates: start: 20170413

REACTIONS (2)
  - Cytomegalovirus infection [Recovered/Resolved]
  - Cytomegalovirus infection [Recovering/Resolving]

NARRATIVE: CASE EVENT DATE: 20170818
